FAERS Safety Report 23018673 (Version 2)
Quarter: 2023Q4

REPORT INFORMATION
  Report Type: Report from Study
  Country: CO (occurrence: CO)
  Receive Date: 20231003
  Receipt Date: 20231020
  Transmission Date: 20240109
  Serious: Yes (Death, Hospitalization, Other)
  Sender: FDA-Public Use
  Company Number: CO-ABBVIE-5431312

PATIENT
  Age: 53 Year
  Sex: Male

DRUGS (1)
  1. ZEMPLAR [Suspect]
     Active Substance: PARICALCITOL
     Indication: Hyperparathyroidism secondary
     Dosage: FORM STRENGTH: 5 MICROGRAM
     Route: 042
     Dates: start: 20201023, end: 20230816

REACTIONS (3)
  - Cardio-respiratory arrest [Fatal]
  - Brain injury [Fatal]
  - Syncope [Fatal]

NARRATIVE: CASE EVENT DATE: 20230801
